FAERS Safety Report 11792818 (Version 9)
Quarter: 2022Q2

REPORT INFORMATION
  Report Type: Spontaneous
  Country: JP (occurrence: JP)
  Receive Date: 20151202
  Receipt Date: 20220428
  Transmission Date: 20220721
  Serious: Yes (Hospitalization, Other)
  Sender: FDA-Public Use
  Company Number: JP-DSJP-DSJ-2015-136343

PATIENT
  Age: 74 Year
  Sex: Female
  Weight: 46 kg

DRUGS (16)
  1. EDOXABAN TOSYLATE [Suspect]
     Active Substance: EDOXABAN TOSYLATE
     Indication: Deep vein thrombosis
     Dosage: 30 MG, QD
     Route: 048
     Dates: start: 20150501, end: 20151106
  2. AMLODIPINE [Concomitant]
     Active Substance: AMLODIPINE BESYLATE
     Indication: Hypertension
     Dosage: 5 MG, QD
     Route: 048
     Dates: start: 20140401
  3. HERBALS [Concomitant]
     Active Substance: HERBALS
     Indication: Flatulence
     Dosage: 5 G, TID
     Route: 048
     Dates: start: 20140401
  4. HERBALS [Concomitant]
     Active Substance: HERBALS
     Indication: Insomnia
     Dosage: 2.5 G, BID
     Route: 048
     Dates: start: 20140401
  5. DOMPERIDONE [Concomitant]
     Active Substance: DOMPERIDONE
     Indication: Nausea
     Dosage: 10 MG, BID
     Route: 048
     Dates: start: 20151106, end: 20151109
  6. MAGNESIUM OXIDE [Concomitant]
     Active Substance: MAGNESIUM OXIDE
     Indication: Constipation
     Dosage: 500 MG, TID
     Route: 048
     Dates: start: 20140401
  7. MICARDIS [Concomitant]
     Active Substance: TELMISARTAN
     Indication: Hypertension
     Dosage: 20 MG, QD
     Route: 048
     Dates: start: 20150601
  8. CEFCAPENE PIVOXIL [Concomitant]
     Active Substance: CEFCAPENE PIVOXIL
     Indication: Infection prophylaxis
     Dosage: 100 MG, BID
     Route: 048
     Dates: start: 20151105, end: 20151106
  9. LANSOPRAZOLE [Concomitant]
     Active Substance: LANSOPRAZOLE
     Indication: Gastrooesophageal reflux disease
     Dosage: 15 MG, QD
     Route: 048
     Dates: start: 20151105
  10. PACLITAXEL [Concomitant]
     Active Substance: PACLITAXEL
     Indication: Ovarian cancer
     Dosage: 234 MG, ONCE EVERY 3 OR 4 WKS
     Route: 041
     Dates: start: 20150928
  11. PACLITAXEL [Concomitant]
     Active Substance: PACLITAXEL
     Dosage: 234 MG, ONCE EVERY 3 OR 4 WKS
     Route: 041
     Dates: start: 20151112
  12. CARBOPLATIN [Concomitant]
     Active Substance: CARBOPLATIN
     Indication: Ovarian cancer
     Dosage: 213 MG, ONCE  EVERY 3 OR 4 WKS
     Route: 041
     Dates: start: 20150928
  13. CARBOPLATIN [Concomitant]
     Active Substance: CARBOPLATIN
     Dosage: 213 MG, ONCE EVERY 3 OR 4 WKS
     Route: 041
     Dates: start: 20151112
  14. AVASTIN [Concomitant]
     Active Substance: BEVACIZUMAB
     Indication: Ovarian cancer
     Dosage: 660 MG, ONCE EVERY 3 OR 4WKS
     Route: 041
     Dates: start: 20151013
  15. AVASTIN [Concomitant]
     Active Substance: BEVACIZUMAB
     Dosage: 660 MG, ONCE EVERY 3 OR 4WKS
     Route: 041
     Dates: start: 20151112
  16. XYLOCAINE                          /00033401/ [Concomitant]
     Indication: Local anaesthesia
     Dosage: 10 ML, QD
     Route: 061
     Dates: start: 20151105, end: 20151105

REACTIONS (3)
  - Haemorrhage [Recovered/Resolved]
  - Renal impairment [Recovered/Resolved]
  - Lymphocele [Recovering/Resolving]

NARRATIVE: CASE EVENT DATE: 20151106
